FAERS Safety Report 4822509-9 (Version None)
Quarter: 2005Q4

REPORT INFORMATION
  Report Type: 
  Country: None (occurrence: None)
  Receive Date: 20051108
  Receipt Date: 20051027
  Transmission Date: 20060501
  Serious: Yes (Hospitalization)
  Sender: FDA-Public Use
  Company Number: US-JNJFOC-20051005860

PATIENT
  Sex: Female
  Weight: 64.86 kg

DRUGS (30)
  1. INFLIXIMAB [Suspect]
     Indication: RHEUMATOID ARTHRITIS
     Route: 042
  2. ACEBUTOLOL [Concomitant]
  3. MULTI-VITAMIN [Concomitant]
  4. MULTI-VITAMIN [Concomitant]
  5. MULTI-VITAMIN [Concomitant]
  6. MULTI-VITAMIN [Concomitant]
  7. MULTI-VITAMIN [Concomitant]
  8. MULTI-VITAMIN [Concomitant]
  9. MULTI-VITAMIN [Concomitant]
  10. MULTI-VITAMIN [Concomitant]
  11. PYRIDOXINE HCL [Concomitant]
  12. FELODIPINE [Concomitant]
  13. PLAVIX [Concomitant]
  14. PROTONIX [Concomitant]
  15. HYDROXYZINE [Concomitant]
  16. FOLIC ACID [Concomitant]
  17. ZETIA [Concomitant]
  18. CLONAZEPAM [Concomitant]
  19. ASPIRIN [Concomitant]
  20. LEVOTHYROXINE [Concomitant]
  21. LIPITOR [Concomitant]
  22. ACTONEL [Concomitant]
  23. VICODIN [Concomitant]
  24. VICODIN [Concomitant]
  25. FIORINAL [Concomitant]
  26. FIORINAL [Concomitant]
  27. FIORINAL [Concomitant]
  28. OSCAL [Concomitant]
  29. AEROBID [Concomitant]
  30. FORADIL [Concomitant]

REACTIONS (2)
  - GASTROENTERITIS VIRAL [None]
  - HYPOXIA [None]
